FAERS Safety Report 6639278-2 (Version None)
Quarter: 2010Q1

REPORT INFORMATION
  Report Type: 
  Country: None (occurrence: None)
  Receive Date: 20100315
  Receipt Date: 20100301
  Transmission Date: 20100710
  Serious: Yes (Hospitalization)
  Sender: FDA-Public Use
  Company Number: 2009-190267-NL

PATIENT
  Age: 31 Year
  Sex: Female
  Weight: 79.4 kg

DRUGS (2)
  1. NUVARING [Suspect]
     Indication: CONTRACEPTION
     Dates: start: 20040401, end: 20060601
  2. NEXIUM [Concomitant]

REACTIONS (13)
  - BRAIN HERNIATION [None]
  - CEREBRAL HAEMORRHAGE [None]
  - CEREBRAL VENOUS THROMBOSIS [None]
  - EMOTIONAL DISORDER [None]
  - HEADACHE [None]
  - HYPOAESTHESIA [None]
  - NAUSEA [None]
  - PARAESTHESIA [None]
  - PHOTOPHOBIA [None]
  - PROTEIN S DECREASED [None]
  - SPEECH DISORDER [None]
  - TRANSVERSE SINUS THROMBOSIS [None]
  - VOMITING [None]
